FAERS Safety Report 20899397 (Version 5)
Quarter: 2022Q3

REPORT INFORMATION
  Report Type: Report from Study
  Country: BR (occurrence: BR)
  Receive Date: 20220601
  Receipt Date: 20220719
  Transmission Date: 20221026
  Serious: Yes (Hospitalization)
  Sender: FDA-Public Use
  Company Number: BR-ABBVIE-22K-020-4416688-00

PATIENT
  Sex: Male
  Weight: 69 kg

DRUGS (3)
  1. HUMIRA [Suspect]
     Active Substance: ADALIMUMAB
     Indication: Psoriasis
     Route: 058
     Dates: start: 20170830, end: 20220508
  2. HUMIRA [Suspect]
     Active Substance: ADALIMUMAB
     Route: 058
     Dates: start: 2022, end: 202206
  3. LORATADINE [Concomitant]
     Active Substance: LORATADINE
     Indication: Antiallergic therapy

REACTIONS (11)
  - Loss of consciousness [Recovered/Resolved]
  - Hypersomnia [Recovered/Resolved]
  - Condition aggravated [Recovered/Resolved]
  - Somnolence [Recovered/Resolved]
  - Metabolic disorder [Unknown]
  - Arthralgia [Recovered/Resolved]
  - Back pain [Recovered/Resolved]
  - Psoriasis [Recovered/Resolved]
  - Psoriasis [Not Recovered/Not Resolved]
  - Therapeutic response shortened [Not Recovered/Not Resolved]
  - Drug ineffective [Unknown]

NARRATIVE: CASE EVENT DATE: 20180101
